FAERS Safety Report 7005425-6 (Version None)
Quarter: 2010Q3

REPORT INFORMATION
  Report Type: 
  Country: None (occurrence: None)
  Receive Date: 20100921
  Receipt Date: 20100908
  Transmission Date: 20110219
  Serious: No
  Sender: FDA-Public Use
  Company Number: US-B.I. PHARMACEUTICALS,INC./RIDGEFIELD-2010-BP-10293BP

PATIENT
  Sex: Female

DRUGS (6)
  1. SPIRIVA [Suspect]
     Indication: DYSPNOEA
     Dosage: 18 MCG
     Route: 055
     Dates: start: 20100701, end: 20100907
  2. ASPIRIN [Concomitant]
     Indication: PROPHYLAXIS
  3. NEXIUM [Concomitant]
     Indication: GASTROOESOPHAGEAL REFLUX DISEASE
  4. XANAX [Concomitant]
     Indication: ANXIETY
  5. LEVOTHROID [Concomitant]
     Indication: THYROID OPERATION
  6. ALBUTEROL [Concomitant]
     Indication: DYSPNOEA

REACTIONS (6)
  - BREAST PAIN [None]
  - DRY MOUTH [None]
  - DYSPHAGIA [None]
  - NECK PAIN [None]
  - PARAESTHESIA ORAL [None]
  - THROAT IRRITATION [None]
